FAERS Safety Report 8510991-5 (Version None)
Quarter: 2012Q3

REPORT INFORMATION
  Report Type: 
  Country: None (occurrence: None)
  Receive Date: 20120716
  Receipt Date: 20120706
  Transmission Date: 20120928
  Serious: Yes (Other)
  Sender: FDA-Public Use
  Company Number: US-JNJFOC-20120703640

PATIENT
  Age: 15 Year

DRUGS (1)
  1. REMICADE [Suspect]
     Indication: COLITIS ULCERATIVE
     Route: 042

REACTIONS (3)
  - MALAISE [None]
  - WHITE BLOOD CELL COUNT ABNORMAL [None]
  - THERAPEUTIC RESPONSE DECREASED [None]
